FAERS Safety Report 6401047-6 (Version None)
Quarter: 2009Q4

REPORT INFORMATION
  Report Type: 
  Country: None (occurrence: None)
  Receive Date: 20091013
  Receipt Date: 20091013
  Transmission Date: 20100525
  Serious: Yes (Other)
  Sender: FDA-Public Use
  Company Number: None

PATIENT
  Age: 52 Year
  Sex: Female
  Weight: 67.1324 kg

DRUGS (1)
  1. TOBRAMYCIN-DEXAMETHASONE [Suspect]
     Indication: BLEPHARITIS
     Dosage: 1 DROP 5X DAILY INTRAOCULAR
     Route: 031
     Dates: start: 20090927, end: 20091007

REACTIONS (2)
  - DRUG INEFFECTIVE [None]
  - PRODUCT SUBSTITUTION ISSUE [None]
